FAERS Safety Report 20477822 (Version 1)
Quarter: 2022Q1

REPORT INFORMATION
  Report Type: Spontaneous
  Country: FR (occurrence: FR)
  Receive Date: 20220216
  Receipt Date: 20220216
  Transmission Date: 20220423
  Serious: Yes (Other)
  Sender: FDA-Public Use
  Company Number: None

PATIENT
  Age: 68 Year
  Sex: Female
  Weight: 55 kg

DRUGS (6)
  1. OXALIPLATIN [Suspect]
     Active Substance: OXALIPLATIN
     Indication: Rectal cancer
     Dosage: 99 MG
     Route: 042
     Dates: start: 20211105, end: 20211105
  2. POLARAMINE [Concomitant]
     Active Substance: DEXCHLORPHENIRAMINE MALEATE
  3. APREPITANT [Concomitant]
     Active Substance: APREPITANT
  4. ONDANSETRON [Concomitant]
     Active Substance: ONDANSETRON
  5. METHYLPREDNISOLONE [Concomitant]
     Active Substance: METHYLPREDNISOLONE
  6. ERBITUX [Concomitant]
     Active Substance: CETUXIMAB

REACTIONS (1)
  - Skin reaction [Recovered/Resolved]
